FAERS Safety Report 7627481-4 (Version None)
Quarter: 2011Q3

REPORT INFORMATION
  Report Type: 
  Country: None (occurrence: None)
  Receive Date: 20110721
  Receipt Date: 20110709
  Transmission Date: 20111222
  Serious: Yes (Hospitalization)
  Sender: FDA-Public Use
  Company Number: JP-ELI_LILLY_AND_COMPANY-JP201107002549

PATIENT
  Sex: Female

DRUGS (3)
  1. BYETTA [Suspect]
     Dosage: 10 UG, UNK
     Route: 058
     Dates: start: 20110301, end: 20110401
  2. BYETTA [Suspect]
     Dosage: 5 UG, UNK
     Route: 058
     Dates: start: 20110401
  3. BYETTA [Suspect]
     Dosage: 5 UG, UNK
     Route: 058
     Dates: start: 20110201, end: 20110301

REACTIONS (7)
  - ALOPECIA AREATA [None]
  - FEELING HOT [None]
  - NAUSEA [None]
  - WEIGHT DECREASED [None]
  - PRURITUS [None]
  - DECREASED APPETITE [None]
  - HIP SURGERY [None]
